FAERS Safety Report 19527629 (Version 1)
Quarter: 2021Q3

REPORT INFORMATION
  Report Type: Report from Study
  Country: AR (occurrence: AR)
  Receive Date: 20210713
  Receipt Date: 20210713
  Transmission Date: 20211014
  Serious: Yes (Other)
  Sender: FDA-Public Use
  Company Number: NVSC2021AR107749

PATIENT
  Age: 79 Year
  Sex: Female

DRUGS (6)
  1. COSENTYX [Suspect]
     Active Substance: SECUKINUMAB
     Indication: PSORIATIC ARTHROPATHY
     Dosage: 300 MG, QMO
     Route: 058
     Dates: start: 20181128, end: 202104
  2. ALPLAX [Concomitant]
     Active Substance: ALPRAZOLAM
     Indication: PRODUCT USED FOR UNKNOWN INDICATION
     Dosage: 0.5 DF (HALF OF 2 MG), BID (HALF TABLET IN THE MORNING AND HALF IN THE NIGHT)
     Route: 065
  3. ELAFAX [Concomitant]
     Indication: PRODUCT USED FOR UNKNOWN INDICATION
     Dosage: 1 DF, QD (BEFORE STARTING WITH MERITAL)
     Route: 065
  4. SEROQUEL [Concomitant]
     Active Substance: QUETIAPINE FUMARATE
     Indication: SLEEP DISORDER
     Dosage: 1 DF, QD (HALF TABLET IN THE NIGHT) (ONE AND A HALF OR TWO YEARS AGO)
     Route: 065
  5. MERITAL [Concomitant]
     Active Substance: MEMANTINE
     Indication: PRODUCT USED FOR UNKNOWN INDICATION
     Dosage: UNK, QD
     Route: 065
  6. COSENTYX [Suspect]
     Active Substance: SECUKINUMAB
     Dosage: 300 MG, QMO
     Route: 058
     Dates: end: 20210506

REACTIONS (16)
  - Oropharyngeal pain [Recovered/Resolved]
  - Dyspnoea [Recovered/Resolved]
  - Myalgia [Recovered/Resolved with Sequelae]
  - Catarrh [Recovered/Resolved with Sequelae]
  - Bone erosion [Unknown]
  - Collagen disorder [Unknown]
  - Fatigue [Recovered/Resolved]
  - Platelet count abnormal [Unknown]
  - Asthenia [Unknown]
  - COVID-19 [Recovered/Resolved]
  - Pneumonia [Recovered/Resolved]
  - Osteoarthritis [Unknown]
  - Cough [Recovered/Resolved]
  - Red blood cell abnormality [Not Recovered/Not Resolved]
  - Gait disturbance [Unknown]
  - Discouragement [Unknown]

NARRATIVE: CASE EVENT DATE: 20210506
